FAERS Safety Report 17256891 (Version 1)
Quarter: 2020Q1

REPORT INFORMATION
  Report Type: Spontaneous
  Country: US (occurrence: US)
  Receive Date: 20200109
  Receipt Date: 20200109
  Transmission Date: 20200409
  Serious: Yes (Other)
  Sender: FDA-Public Use
  Company Number: None

PATIENT
  Age: 56 Year
  Sex: Female
  Weight: 78.75 kg

DRUGS (4)
  1. DEXMETHYLPHENIDATE;IMPAX GENERICS [Suspect]
     Active Substance: DEXMETHYLPHENIDATE
     Indication: ATTENTION DEFICIT/HYPERACTIVITY DISORDER
     Dosage: ?          QUANTITY:1 CAPSULE(S);?
     Route: 048
     Dates: start: 20191208, end: 20200108
  2. PRESITIQUE [Concomitant]
  3. LITHIUM. [Concomitant]
     Active Substance: LITHIUM
  4. LAMICTAL [Concomitant]
     Active Substance: LAMOTRIGINE

REACTIONS (6)
  - Disturbance in attention [None]
  - Tremor [None]
  - Product substitution issue [None]
  - Bipolar disorder [None]
  - Tachycardia [None]
  - Therapeutic product effect decreased [None]

NARRATIVE: CASE EVENT DATE: 20200102
